FAERS Safety Report 23789698 (Version 1)
Quarter: 2024Q2

REPORT INFORMATION
  Report Type: Spontaneous
  Country: US (occurrence: None)
  Receive Date: 20240426
  Receipt Date: 20240426
  Transmission Date: 20240715
  Serious: Yes (Hospitalization)
  Sender: FDA-Public Use
  Company Number: None

PATIENT
  Age: 61 Year
  Sex: Male
  Weight: 85.7 kg

DRUGS (2)
  1. CLOZAPINE [Suspect]
     Active Substance: CLOZAPINE
     Indication: Bipolar I disorder
     Dosage: 300 MG AT BEDTIME PO
     Route: 048
     Dates: start: 20230526, end: 20230531
  2. LITHIUM CARBONATE [Suspect]
     Active Substance: LITHIUM CARBONATE
     Dosage: 600 MG BID PO?
     Route: 048
     Dates: start: 20230207, end: 20230531

REACTIONS (10)
  - Dyskinesia [None]
  - Tremor [None]
  - Muscle twitching [None]
  - Mental status changes [None]
  - Dysarthria [None]
  - Cognitive disorder [None]
  - Alcohol use [None]
  - Toxicity to various agents [None]
  - Poisoning [None]
  - Dehydration [None]

NARRATIVE: CASE EVENT DATE: 20230530
